FAERS Safety Report 8913105 (Version 2)
Quarter: 2013Q1

REPORT INFORMATION
  Report Type: Report from Study
  Country: US (occurrence: US)
  Receive Date: 20121116
  Receipt Date: 20130125
  Transmission Date: 20140127
  Serious: Yes (Death)
  Sender: FDA-Public Use
  Company Number: US-US-EMD SERONO, INC.-7174916

PATIENT
  Sex: Female
  Weight: 79 kg

DRUGS (4)
  1. REBIF [Suspect]
     Indication: MULTIPLE SCLEROSIS
     Route: 058
     Dates: start: 20110509
  2. NEURONTIN [Concomitant]
     Indication: PARAESTHESIA
     Route: 048
     Dates: start: 2008
  3. CELEXA [Concomitant]
     Indication: DEPRESSION
     Route: 048
     Dates: start: 2008
  4. FLEXERIL [Concomitant]
     Indication: MUSCLE SPASMS
     Dates: start: 2008

REACTIONS (3)
  - Hypotension [Fatal]
  - Heart rate decreased [Fatal]
  - Depressed level of consciousness [Fatal]
